FAERS Safety Report 25200435 (Version 1)
Quarter: 2025Q2

REPORT INFORMATION
  Report Type: Other
  Country: CA (occurrence: CA)
  Receive Date: 20250415
  Receipt Date: 20250415
  Transmission Date: 20250717
  Serious: Yes (Life-Threatening)
  Sender: LYNE LABORATORIES
  Company Number: CA-Lyne Laboratories Inc.-2174842

PATIENT

DRUGS (3)
  1. DEXAMETHASONE [Suspect]
     Active Substance: DEXAMETHASONE
     Indication: Plasma cell myeloma refractory
  2. LENALIDOMIDE [Suspect]
     Active Substance: LENALIDOMIDE
  3. CYCLOPHOSPHAMIDE [Suspect]
     Active Substance: CYCLOPHOSPHAMIDE

REACTIONS (2)
  - Haematuria [Unknown]
  - Product use in unapproved indication [Unknown]
